FAERS Safety Report 7647109-7 (Version None)
Quarter: 2011Q3

REPORT INFORMATION
  Report Type: 
  Country: None (occurrence: None)
  Receive Date: 20110801
  Receipt Date: 20110721
  Transmission Date: 20111222
  Serious: Yes (Other)
  Sender: FDA-Public Use
  Company Number: US-ROCHE-724541

PATIENT
  Sex: Male
  Weight: 46.3 kg

DRUGS (2)
  1. ACCUTANE [Suspect]
     Indication: ACNE
     Route: 065
     Dates: start: 20010801, end: 20020201
  2. ACCUTANE [Suspect]
     Route: 065
     Dates: start: 20030101, end: 20040101

REACTIONS (9)
  - INTESTINAL HAEMORRHAGE [None]
  - DEPRESSION [None]
  - SUICIDAL IDEATION [None]
  - CROHN'S DISEASE [None]
  - RECTAL HAEMORRHAGE [None]
  - ABDOMINAL PAIN [None]
  - IRRITABLE BOWEL SYNDROME [None]
  - NAUSEA [None]
  - INFLAMMATORY BOWEL DISEASE [None]
